FAERS Safety Report 4602623-3 (Version None)
Quarter: 2005Q1

REPORT INFORMATION
  Report Type: 
  Country: None (occurrence: None)
  Receive Date: 20050308
  Receipt Date: 20050303
  Transmission Date: 20050727
  Serious: Yes (Hospitalization)
  Sender: FDA-Public Use
  Company Number: 05-02-0212

PATIENT
  Age: 65 Year
  Sex: Male

DRUGS (13)
  1. CLOZAPINE [Suspect]
     Indication: SCHIZOPHRENIA
     Dosage: 250 MG BID ORAL
     Route: 048
     Dates: start: 20010601, end: 20041201
  2. DEPAKOTE [Suspect]
     Indication: SCHIZOPHRENIA
     Dosage: 750 MG QD
  3. HYDROCHLOROTHIAZIDE [Concomitant]
  4. ZOCOR [Concomitant]
  5. GLYBURIDE [Concomitant]
  6. METFORMIN HCL [Concomitant]
  7. LABETALOL HCL [Concomitant]
  8. NORVASC [Concomitant]
  9. VITAMIN C [Concomitant]
  10. FOLIC ACID [Concomitant]
  11. PREVACID [Concomitant]
  12. ASPIRIN [Concomitant]
  13. FERROUS SULFATE TAB [Concomitant]

REACTIONS (5)
  - CEREBROVASCULAR ACCIDENT [None]
  - DECUBITUS ULCER [None]
  - GASTROINTESTINAL HAEMORRHAGE [None]
  - MENTAL DISORDER [None]
  - SEPSIS [None]
